FAERS Safety Report 5952546-2 (Version None)
Quarter: 2008Q4

REPORT INFORMATION
  Report Type: 
  Country: None (occurrence: None)
  Receive Date: 20081024
  Receipt Date: 20080116
  Transmission Date: 20090506
  Serious: Yes (Other)
  Sender: FDA-Public Use
  Company Number: 44356

PATIENT
  Sex: Male

DRUGS (3)
  1. METHOTREXATE [Suspect]
     Indication: LYMPHOMA
     Dosage: IV/MID NOV2007 - EARLY DEC2007
     Route: 042
     Dates: start: 20071101, end: 20071201
  2. METHOTREXATE [Suspect]
     Indication: SARCOMA
     Dosage: IV/MID NOV2007 - EARLY DEC2007
     Route: 042
     Dates: start: 20071101, end: 20071201
  3. .. [Concomitant]

REACTIONS (1)
  - RENAL FAILURE [None]
